FAERS Safety Report 7473474-X (Version None)
Quarter: 2011Q1

REPORT INFORMATION
  Report Type: 
  Country: None (occurrence: None)
  Receive Date: 20110302
  Receipt Date: 20101029
  Transmission Date: 20110831
  Serious: Yes (Other)
  Sender: FDA-Public Use
  Company Number: 163-21880-10071447

PATIENT
  Age: 63 Year
  Sex: Male

DRUGS (3)
  1. REVLIMID [Suspect]
     Indication: MULTIPLE MYELOMA
     Dosage: 25 MG, 1 IN 1 D, PO; 5 MG, 1 IN 1 D, PO
     Route: 048
     Dates: start: 20080701
  2. REVLIMID [Suspect]
     Indication: MULTIPLE MYELOMA
     Dosage: 25 MG, 1 IN 1 D, PO; 5 MG, 1 IN 1 D, PO
     Route: 048
     Dates: start: 20090401
  3. ZOMETA [Concomitant]

REACTIONS (3)
  - TOOTH DISORDER [None]
  - DIVERTICULITIS [None]
  - DIARRHOEA [None]
